FAERS Safety Report 14027978 (Version 1)
Quarter: 2017Q3

REPORT INFORMATION
  Report Type: Spontaneous
  Country: US (occurrence: None)
  Receive Date: 20170929
  Receipt Date: 20170929
  Transmission Date: 20171128
  Serious: Yes (Hospitalization)
  Sender: FDA-Public Use
  Company Number: None

PATIENT
  Age: 62 Year
  Sex: Male

DRUGS (6)
  1. COTELLIC [Suspect]
     Active Substance: COBIMETINIB
     Indication: MALIGNANT MELANOMA
     Dosage: DAILY FOR 21 DAYS
     Route: 048
     Dates: start: 20170919, end: 20170922
  2. ZANTAC [Concomitant]
     Active Substance: RANITIDINE HYDROCHLORIDE
  3. ADALAT [Concomitant]
     Active Substance: NIFEDIPINE
  4. ZELBORAF [Suspect]
     Active Substance: VEMURAFENIB
     Indication: MALIGNANT MELANOMA
     Route: 048
     Dates: start: 20170919, end: 20170922
  5. BENAZEPRIL [Concomitant]
     Active Substance: BENAZEPRIL HYDROCHLORIDE
  6. ATENOLOL. [Concomitant]
     Active Substance: ATENOLOL

REACTIONS (1)
  - Dyspnoea [None]

NARRATIVE: CASE EVENT DATE: 20170922
